FAERS Safety Report 7509049-3 (Version None)
Quarter: 2011Q2

REPORT INFORMATION
  Report Type: 
  Country: None (occurrence: None)
  Receive Date: 20110527
  Receipt Date: 20110523
  Transmission Date: 20111010
  Serious: Yes (Hospitalization, Disabling, Other)
  Sender: FDA-Public Use
  Company Number: US-PFIZER INC-2011044474

PATIENT
  Sex: Male

DRUGS (5)
  1. XANAX [Concomitant]
     Indication: ANXIETY
     Dosage: UNK
     Dates: start: 20050101
  2. TRICOR [Concomitant]
     Indication: HYPERTRIGLYCERIDAEMIA
     Dosage: UNK
     Dates: start: 20050101, end: 20100101
  3. XANAX [Concomitant]
     Indication: INSOMNIA
  4. LIPITOR [Concomitant]
     Indication: HYPERTENSION
     Dosage: UNK
     Dates: start: 20050101, end: 20090101
  5. CHANTIX [Suspect]
     Indication: SMOKING CESSATION THERAPY
     Dosage: STARTING PACK AND 1MG
     Dates: start: 20090825, end: 20091001

REACTIONS (8)
  - DIZZINESS [None]
  - SUICIDAL IDEATION [None]
  - DEPRESSION [None]
  - ANXIETY [None]
  - PAIN IN EXTREMITY [None]
  - FEMUR FRACTURE [None]
  - FALL [None]
  - INSOMNIA [None]
